FAERS Safety Report 23265444 (Version 2)
Quarter: 2024Q1

REPORT INFORMATION
  Report Type: Report from Study
  Country: EG (occurrence: EG)
  Receive Date: 20231206
  Receipt Date: 20240108
  Transmission Date: 20240410
  Serious: Yes (Hospitalization)
  Sender: FDA-Public Use
  Company Number: EG-Merck Healthcare KGaA-2023491976

PATIENT
  Age: 45 Year
  Sex: Female

DRUGS (1)
  1. REBIF [Suspect]
     Active Substance: INTERFERON BETA-1A
     Indication: Multiple sclerosis
     Route: 058
     Dates: start: 20170101

REACTIONS (7)
  - Pain [Unknown]
  - Bone pain [Unknown]
  - Fatigue [Unknown]
  - Nervous system disorder [Unknown]
  - Calcium deficiency [Unknown]
  - Anaemia [Unknown]
  - Insomnia [Not Recovered/Not Resolved]

NARRATIVE: CASE EVENT DATE: 20231101
